FAERS Safety Report 25550019 (Version 1)
Quarter: 2025Q3

REPORT INFORMATION
  Report Type: Report from Study
  Country: EU (occurrence: EU)
  Receive Date: 20250714
  Receipt Date: 20250714
  Transmission Date: 20251020
  Serious: Yes (Death)
  Sender: SANOFI AVENTIS
  Company Number: EU-DialogSolutions-SAAVPROD-PI798564-C1

PATIENT

DRUGS (10)
  1. ISATUXIMAB [Suspect]
     Active Substance: ISATUXIMAB
     Indication: Plasma cell myeloma
     Dosage: 10 MG/KG, QW, D1, 8, 15, 22 IN 28 DAYS CYCLE (INDUCTION TREATMENT)
     Route: 042
  2. ISATUXIMAB [Suspect]
     Active Substance: ISATUXIMAB
     Dosage: 10 MG/KG, QOW, D1, 15 IN 28 DAYS CYCLE (INDUCTION TREATMENT)
     Route: 042
  3. ISATUXIMAB [Suspect]
     Active Substance: ISATUXIMAB
     Route: 042
  4. DEXAMETHASONE [Suspect]
     Active Substance: DEXAMETHASONE
     Indication: Plasma cell myeloma
  5. DEXAMETHASONE [Suspect]
     Active Substance: DEXAMETHASONE
     Dosage: UNK, QW, D1, 8, 15, 22 IN 28 DAYS CYCLE (INDUCTION TREATMENT)
  6. BORTEZOMIB [Suspect]
     Active Substance: BORTEZOMIB
     Indication: Plasma cell myeloma
     Route: 058
  7. BORTEZOMIB [Suspect]
     Active Substance: BORTEZOMIB
     Dosage: 1.3 MG/M2, QW, D1, 8, 15, 22 IN 28 DAYS CYCLE (INDUCTION TREATMENT)
     Route: 058
  8. CYCLOPHOSPHAMIDE [Suspect]
     Active Substance: CYCLOPHOSPHAMIDE
     Indication: Plasma cell myeloma
     Dosage: 300 MG/M2, QW, D1, 8, 15 IN 28 DAYS CYCLE (INDUCTION TREATMENT)
     Route: 042
  9. CYCLOPHOSPHAMIDE [Suspect]
     Active Substance: CYCLOPHOSPHAMIDE
     Dosage: 300 MG/M2, QW, D1, 8, 15, 22 IN 28 DAYS CYCLE (INDUCTION TREATMENT)
     Route: 042
  10. LENALIDOMIDE [Suspect]
     Active Substance: LENALIDOMIDE
     Indication: Plasma cell myeloma
     Dosage: UNK, QD, D1-28 OF EACH CYCLE
     Route: 048

REACTIONS (1)
  - Respiratory tract infection [Fatal]
